FAERS Safety Report 4314425-6 (Version None)
Quarter: 2004Q1

REPORT INFORMATION
  Report Type: 
  Country: None (occurrence: None)
  Receive Date: 20040308
  Receipt Date: 20040225
  Transmission Date: 20041129
  Serious: Yes (Hospitalization)
  Sender: FDA-Public Use
  Company Number: USA-2004-0013400

PATIENT
  Age: 50 Year
  Sex: Male

DRUGS (7)
  1. OXYCONTIN [Suspect]
     Indication: PAIN
     Dosage: 20 MG, Q8H
  2. PREVACID (LASOPRAZOLE) [Concomitant]
  3. TRAZODONE HCL [Concomitant]
  4. CLONAZEPAM (CLLONAZEPAM) [Concomitant]
  5. ZANAFLEX [Concomitant]
  6. INDERAL-AL (PROPRANOLOL HYDROCHLORIDE) [Concomitant]
  7. EXCEDRIN (SALICYLAMIDE) [Concomitant]

REACTIONS (2)
  - OFF LABEL USE [None]
  - PULMONARY EMBOLISM [None]
